FAERS Safety Report 21296008 (Version 2)
Quarter: 2022Q3

REPORT INFORMATION
  Report Type: Spontaneous
  Country: JP (occurrence: JP)
  Receive Date: 20220906
  Receipt Date: 20220912
  Transmission Date: 20221027
  Serious: Yes (Life-Threatening, Hospitalization, Other)
  Sender: FDA-Public Use
  Company Number: JP-KYOWAKIRIN-2022AKK013476

PATIENT

DRUGS (16)
  1. ISTRADEFYLLINE [Suspect]
     Active Substance: ISTRADEFYLLINE
     Indication: Therapeutic response shortened
     Dosage: UNK
     Route: 048
     Dates: start: 2018
  2. ISTRADEFYLLINE [Suspect]
     Active Substance: ISTRADEFYLLINE
     Dosage: OVERDOSED DAILY ON 40 TO 60 MG
     Route: 048
  3. CARBIDOPA\LEVODOPA [Concomitant]
     Active Substance: CARBIDOPA\LEVODOPA
     Indication: Parkinson^s disease
     Dosage: UNK MG
     Route: 065
     Dates: start: 2016
  4. CARBIDOPA\LEVODOPA [Concomitant]
     Active Substance: CARBIDOPA\LEVODOPA
     Dosage: LEVODOPA AND CARBIDOPA WERE GRADUALLY INCREASED
     Dates: start: 2016
  5. CARBIDOPA\LEVODOPA [Concomitant]
     Active Substance: CARBIDOPA\LEVODOPA
     Dosage: FROM THE 3RD DAY OF HOSPITALIZATION, 300 MG OF LEVODOPA/30 MG OF CARBIDOPA
     Route: 065
  6. CARBIDOPA\LEVODOPA [Concomitant]
     Active Substance: CARBIDOPA\LEVODOPA
     Dosage: 400 MG OF LEVODOPA/40 MG OF CARBIDOPA
  7. CARBIDOPA\LEVODOPA [Concomitant]
     Active Substance: CARBIDOPA\LEVODOPA
     Dosage: FROM DAY 18 OF HOSPITALIZATION, 450 MG OF LEVODOPA/45 MG OF CARBIDOPA
  8. ENTACAPONE [Concomitant]
     Active Substance: ENTACAPONE
     Indication: Therapeutic response shortened
     Dosage: 500 MG
     Route: 065
     Dates: start: 2018
  9. ENTACAPONE [Concomitant]
     Active Substance: ENTACAPONE
     Dosage: 400 MG
     Route: 065
  10. ENTACAPONE [Concomitant]
     Active Substance: ENTACAPONE
     Dosage: FROM DAY 18 OF HOSPITALIZATION, 500 MG OF ENTACAPONE
  11. ROPINIROLE [Concomitant]
     Active Substance: ROPINIROLE
     Indication: Parkinson^s disease
     Dosage: UNK
     Route: 048
     Dates: start: 201407
  12. ROPINIROLE [Concomitant]
     Active Substance: ROPINIROLE
     Dosage: GRADUALLY INCREASED
     Dates: start: 2016
  13. RASAGILINE MESYLATE [Concomitant]
     Active Substance: RASAGILINE MESYLATE
     Indication: Parkinson^s disease
     Dosage: UNK
     Route: 065
     Dates: start: 2020
  14. AMBROXOL HYDROCHLORIDE [Concomitant]
     Active Substance: AMBROXOL HYDROCHLORIDE
     Indication: Product used for unknown indication
     Dosage: UNK
     Route: 065
  15. ALFACALCIDOL [Concomitant]
     Active Substance: ALFACALCIDOL
     Indication: Product used for unknown indication
     Dosage: UNK
     Route: 065
  16. ROTIGOTINE [Concomitant]
     Active Substance: ROTIGOTINE
     Indication: Parkinson^s disease
     Dosage: ROTIGOTINE TRANSDERMAL PATCHES AT 4.5 MG WERE ADDED FROM THE 15TH DAY OF HOSPITALIZATION
     Route: 062

REACTIONS (2)
  - Parkinsonism hyperpyrexia syndrome [Recovering/Resolving]
  - Overdose [Unknown]

NARRATIVE: CASE EVENT DATE: 20190101
